FAERS Safety Report 9903362 (Version 2)
Quarter: 2014Q1

REPORT INFORMATION
  Report Type: Spontaneous
  Country: US (occurrence: US)
  Receive Date: 20140217
  Receipt Date: 20140217
  Transmission Date: 20141002
  Serious: No
  Sender: FDA-Public Use
  Company Number: US-GILEAD-2011-0046737

PATIENT
  Sex: Female
  Weight: 63.95 kg

DRUGS (6)
  1. LETAIRIS [Suspect]
     Indication: PULMONARY HYPERTENSION
     Dosage: 10 MG, UNK
     Route: 048
     Dates: start: 20080708
  2. LIPITOR [Concomitant]
  3. METOPROLOL [Concomitant]
  4. ASPIRIN [Concomitant]
  5. COUMADIN                           /00014802/ [Concomitant]
  6. OXYGEN [Concomitant]

REACTIONS (3)
  - Oedema [Unknown]
  - Dyspnoea [Unknown]
  - Pleural effusion [Unknown]
